FAERS Safety Report 7086905-4 (Version None)
Quarter: 2010Q4

REPORT INFORMATION
  Report Type: 
  Country: None (occurrence: None)
  Receive Date: 20101106
  Receipt Date: 20100831
  Transmission Date: 20110411
  Serious: No
  Sender: FDA-Public Use
  Company Number: US-WYE-H17296310

PATIENT

DRUGS (1)
  1. RAPAMUNE [Suspect]
     Dosage: NOT PROVIDED
     Route: 048
     Dates: end: 20100203

REACTIONS (2)
  - ANAEMIA [None]
  - CONDITION AGGRAVATED [None]
